FAERS Safety Report 9360013 (Version 1)
Quarter: 2013Q2

REPORT INFORMATION
  Report Type: Report from Study
  Country: AR (occurrence: AR)
  Receive Date: 20130621
  Receipt Date: 20130621
  Transmission Date: 20140414
  Serious: Yes (Hospitalization, Other)
  Sender: FDA-Public Use
  Company Number: PHHY2013AR062476

PATIENT
  Sex: Male

DRUGS (2)
  1. ONBREZ [Suspect]
     Indication: CHRONIC OBSTRUCTIVE PULMONARY DISEASE
     Dosage: UNK
     Dates: start: 201211, end: 20130422
  2. ONBREZ [Suspect]
     Dosage: UNK
     Dates: start: 20130428

REACTIONS (5)
  - Myocardial infarction [Recovering/Resolving]
  - Chest pain [Recovering/Resolving]
  - Cardiac arrest [Recovering/Resolving]
  - Myalgia [Recovering/Resolving]
  - Inappropriate schedule of drug administration [Unknown]
